FAERS Safety Report 5361076-0 (Version None)
Quarter: 2007Q2

REPORT INFORMATION
  Report Type: 
  Country: None (occurrence: None)
  Receive Date: 20070612
  Receipt Date: 20070529
  Transmission Date: 20071010
  Serious: Yes (Other)
  Sender: FDA-Public Use
  Company Number: T200700621

PATIENT
  Age: 57 Year
  Sex: Male

DRUGS (5)
  1. OXYCODONE(OXYCODONE HCL) TABLET, 15MG [Suspect]
     Indication: BACK PAIN
     Dosage: 30 MG, QID
     Dates: start: 20070101
  2. OXYCODONE(OXYCODONE HCL) TABLET, 15MG [Suspect]
     Indication: MIGRAINE
     Dosage: 30 MG, QID
     Dates: start: 20070101
  3. AMBIEN [Concomitant]
  4. LAMICTAL [Concomitant]
  5. LEXAPRO [Concomitant]

REACTIONS (7)
  - DEPRESSION [None]
  - DRUG DEPENDENCE [None]
  - HEADACHE [None]
  - NERVOUSNESS [None]
  - PARANOIA [None]
  - SUICIDAL IDEATION [None]
  - TREMOR [None]
